FAERS Safety Report 6276330-8 (Version None)
Quarter: 2009Q3

REPORT INFORMATION
  Report Type: 
  Country: None (occurrence: None)
  Receive Date: 20090722
  Receipt Date: 20090713
  Transmission Date: 20100115
  Serious: Yes (Hospitalization)
  Sender: FDA-Public Use
  Company Number: US-JNJFOC-20090705031

PATIENT
  Sex: Male
  Weight: 24.95 kg

DRUGS (4)
  1. RISPERDAL [Suspect]
     Route: 048
  2. RISPERDAL [Suspect]
     Route: 048
  3. RISPERDAL [Suspect]
     Indication: AFFECTIVE DISORDER
     Route: 048
  4. RISPERIDONE M-TAB GENERIC [Suspect]
     Indication: AFFECTIVE DISORDER
     Route: 048

REACTIONS (3)
  - ANXIETY [None]
  - CONDITION AGGRAVATED [None]
  - SELF-INJURIOUS IDEATION [None]
